FAERS Safety Report 4393142-0 (Version None)
Quarter: 2004Q3

REPORT INFORMATION
  Report Type: 
  Country: None (occurrence: None)
  Receive Date: 20040702
  Receipt Date: 20040622
  Transmission Date: 20050211
  Serious: Yes (Death)
  Sender: FDA-Public Use
  Company Number: JP-JNJFOC-20031102671

PATIENT
  Age: 82 Year
  Sex: Male

DRUGS (8)
  1. FENTANYL [Suspect]
     Indication: CANCER PAIN
     Dosage: SEE IMAGE, TRANSDERMAL
     Route: 062
     Dates: start: 20031016, end: 20031028
  2. FENTANYL [Suspect]
     Indication: CANCER PAIN
     Dosage: SEE IMAGE, TRANSDERMAL
     Route: 062
     Dates: start: 20031028, end: 20031101
  3. SENNOSIDE ALL OTHER THERAPEUTIC PRODUCTS [Concomitant]
  4. SODIUM PICOSULFATE SODIUM PICOSULFATE [Concomitant]
  5. DOMPERIDONE (DOMPERIDONE) [Concomitant]
  6. PREDNISOLONE [Concomitant]
  7. BACTRIM [Concomitant]
  8. FAMOTIDINE [Concomitant]

REACTIONS (2)
  - MALIGNANT NEOPLASM PROGRESSION [None]
  - PANCREATIC CARCINOMA [None]
